FAERS Safety Report 5499494-2 (Version None)
Quarter: 2007Q4

REPORT INFORMATION
  Report Type: 
  Country: None (occurrence: None)
  Receive Date: 20071026
  Receipt Date: 20071015
  Transmission Date: 20080405
  Serious: Yes (Hospitalization)
  Sender: FDA-Public Use
  Company Number: US-BAUSCH-2007BL002124

PATIENT
  Age: 62 Year
  Sex: Male
  Weight: 77 kg

DRUGS (32)
  1. ATROPINE SULFATE [Suspect]
     Indication: PREOPERATIVE CARE
     Route: 047
     Dates: start: 20070516, end: 20070520
  2. ACYCLOVIR [Concomitant]
  3. ERGOCALCIFEROL [Concomitant]
  4. ESOMEPRAZOLE [Concomitant]
  5. DIFLUCAN [Concomitant]
  6. HYDROCORTISONE [Concomitant]
  7. SYNTHROID [Concomitant]
  8. CELLCEPT /USA/ [Concomitant]
  9. SENOKOT [Concomitant]
  10. SULFAMETHOXAZOLE [Concomitant]
  11. FLOMAX [Concomitant]
  12. EFFEXOR XR [Concomitant]
  13. ATIVAN [Concomitant]
  14. MORPHINE [Concomitant]
  15. CALCIUM [Concomitant]
  16. BACTRIM DS [Concomitant]
  17. FOSAMAX ONCE WEEKLY [Concomitant]
  18. PROTONIX [Concomitant]
  19. TESTOSTERONE [Concomitant]
     Route: 023
  20. VITAMIN D [Concomitant]
  21. COMPAZINE [Concomitant]
  22. BENADRYL [Concomitant]
  23. ALTACE [Concomitant]
     Dates: end: 20070518
  24. GLIPIZIDE [Concomitant]
     Dates: end: 20070518
  25. LASIX [Concomitant]
     Dates: end: 20070518
  26. POTASSIUM CHLORIDE [Concomitant]
     Dates: end: 20070518
  27. FLORINEF [Concomitant]
     Dates: end: 20070518
  28. FLORINEF [Concomitant]
     Dates: start: 20070519
  29. TOPROL-XL [Concomitant]
     Dates: end: 20070518
  30. TOPROL-XL [Concomitant]
     Dates: start: 20070519
  31. OXYCONTIN [Concomitant]
     Dates: end: 20070518
  32. OXYCONTIN [Concomitant]
     Dates: start: 20070519

REACTIONS (43)
  - ABNORMAL BEHAVIOUR [None]
  - ANAEMIA [None]
  - ANISOCYTOSIS [None]
  - ARTHRALGIA [None]
  - ASPIRATION [None]
  - ATELECTASIS [None]
  - BACK PAIN [None]
  - CEREBELLAR ATROPHY [None]
  - CEREBRAL ATROPHY [None]
  - CONSTIPATION [None]
  - CONTUSION [None]
  - CONVULSION [None]
  - CUSHINGOID [None]
  - ENCEPHALITIS TOXIC [None]
  - FALL [None]
  - FLUID RETENTION [None]
  - GLOBULINS DECREASED [None]
  - HAEMATOCRIT DECREASED [None]
  - HAEMOGLOBIN DECREASED [None]
  - HYPERGLYCAEMIA [None]
  - LIMB DISCOMFORT [None]
  - LYMPHOCYTE COUNT DECREASED [None]
  - MEAN CELL HAEMOGLOBIN CONCENTRATION DECREASED [None]
  - METAMYELOCYTE COUNT [None]
  - MUSCULOSKELETAL DISCOMFORT [None]
  - MYELOCYTE COUNT [None]
  - OEDEMA PERIPHERAL [None]
  - PHARYNGOLARYNGEAL PAIN [None]
  - PLEURAL EFFUSION [None]
  - PRESSURE OF SPEECH [None]
  - PSYCHOMOTOR HYPERACTIVITY [None]
  - PSYCHOTIC DISORDER [None]
  - PUPILS UNEQUAL [None]
  - RED BLOOD CELL COUNT DECREASED [None]
  - RED CELL DISTRIBUTION WIDTH INCREASED [None]
  - RENAL CYST [None]
  - SENSORY DISTURBANCE [None]
  - SKIN DISORDER [None]
  - SKIN LACERATION [None]
  - SLEEP APNOEA SYNDROME [None]
  - TONGUE ULCERATION [None]
  - WHITE BLOOD CELL DISORDER [None]
  - WOUND DRAINAGE [None]
